FAERS Safety Report 18813923 (Version 1)
Quarter: 2021Q1

REPORT INFORMATION
  Report Type: Spontaneous
  Country: US (occurrence: US)
  Receive Date: 20210201
  Receipt Date: 20210201
  Transmission Date: 20210419
  Serious: No
  Sender: FDA-Public Use
  Company Number: US-AUROBINDO-AUR-APL-2020-003611

PATIENT
  Sex: Female

DRUGS (1)
  1. DULOXETINE DELAYED?RELEASE CAPSULES USP 20 MG [Suspect]
     Active Substance: DULOXETINE
     Indication: PRODUCT USED FOR UNKNOWN INDICATION
     Dosage: 1 DOSAGE FORM, ONCE A DAY
     Route: 065

REACTIONS (6)
  - Asthenia [Unknown]
  - Arthralgia [Unknown]
  - Urticaria [Unknown]
  - Rash [Unknown]
  - Pruritus [Unknown]
  - Lip swelling [Recovering/Resolving]

NARRATIVE: CASE EVENT DATE: 20200113
